FAERS Safety Report 25284032 (Version 2)
Quarter: 2025Q2

REPORT INFORMATION
  Report Type: Spontaneous
  Country: US (occurrence: US)
  Receive Date: 20250508
  Receipt Date: 20250607
  Transmission Date: 20250717
  Serious: Yes (Other)
  Sender: CENTRAL ADMIXTURE PHARMACY SERVICES, INC
  Company Number: US-Central Admixture Pharmacy Services, Inc. - Phoenix-2176403

PATIENT
  Age: 71 Year
  Sex: Female
  Weight: 89.545 kg

DRUGS (2)
  1. DEL NIDO FORMULA (ISOLYTE S, PH 7.4) [Suspect]
     Active Substance: LIDOCAINE HYDROCHLORIDE\MAGNESIUM CHLORIDE\MAGNESIUM SULFATE\MANNITOL\POTASSIUM CHLORIDE\POTASSIUM P
     Indication: Cardiac operation
     Dates: start: 20250430, end: 20250430
  2. DEL NIDO FORMULA (ISOLYTE S, PH 7.4) [Suspect]
     Active Substance: LIDOCAINE HYDROCHLORIDE\MAGNESIUM CHLORIDE\MAGNESIUM SULFATE\MANNITOL\POTASSIUM CHLORIDE\POTASSIUM P
     Indication: Cardiac operation

REACTIONS (1)
  - Therapeutic product effect prolonged [Recovered/Resolved]
